FAERS Safety Report 4445062-0 (Version None)
Quarter: 2004Q3

REPORT INFORMATION
  Report Type: 
  Country: None (occurrence: None)
  Receive Date: 20040903
  Receipt Date: 20040824
  Transmission Date: 20050211
  Serious: Yes (Death, Hospitalization)
  Sender: FDA-Public Use
  Company Number: 163-20785-04070451

PATIENT
  Age: 81 Year
  Sex: Male

DRUGS (20)
  1. THALOMID [Suspect]
     Indication: RENAL CELL CARCINOMA STAGE UNSPECIFIED
     Dosage: 200 MG, DAILY, ORAL
     Route: 048
     Dates: start: 20040709, end: 20040804
  2. DETROL [Concomitant]
  3. REMERON [Concomitant]
  4. XANAX [Concomitant]
  5. CARDURA [Concomitant]
  6. PEPCID [Concomitant]
  7. PREDNISONE [Concomitant]
  8. ALBUTEROL [Concomitant]
  9. PILOCARPINE (PILOCARPINE) [Concomitant]
  10. BETIMOL (TIMOLOL) [Concomitant]
  11. XALATAN [Concomitant]
  12. ASA (ACETYLSALICYCLIC ACID) [Concomitant]
  13. METOPROLOL TARTRATE [Concomitant]
  14. ADVAIR (SERETIDE MITE) [Concomitant]
  15. PLAVIX [Concomitant]
  16. COLACE (DOCUSATE SODIUM) [Concomitant]
  17. DULCOLAX [Concomitant]
  18. FERROUS SULFATE TAB [Concomitant]
  19. COUMADIN [Concomitant]
  20. OXYGEN (OXYGEN) [Concomitant]

REACTIONS (5)
  - ASTHENIA [None]
  - CARDIAC DISORDER [None]
  - MALIGNANT NEOPLASM PROGRESSION [None]
  - RECTAL HAEMORRHAGE [None]
  - RENAL CELL CARCINOMA STAGE UNSPECIFIED [None]
